FAERS Safety Report 6913794-8 (Version None)
Quarter: 2010Q3

REPORT INFORMATION
  Report Type: 
  Country: None (occurrence: None)
  Receive Date: 20100809
  Receipt Date: 20100730
  Transmission Date: 20110219
  Serious: Yes (Hospitalization)
  Sender: FDA-Public Use
  Company Number: TW-ABBOTT-10P-153-0660556-00

PATIENT
  Age: 67 Year
  Sex: Male

DRUGS (5)
  1. VALPROATE SODIUM [Suspect]
     Indication: BIPOLAR I DISORDER
     Route: 048
  2. VALPROATE SODIUM [Suspect]
     Route: 048
  3. LAMOTRIGINE [Suspect]
     Indication: BIPOLAR I DISORDER
     Route: 048
  4. CLONAZEPAM [Concomitant]
     Indication: PRODUCT USED FOR UNKNOWN INDICATION
  5. LITHIUM [Concomitant]
     Indication: PRODUCT USED FOR UNKNOWN INDICATION

REACTIONS (4)
  - HYPOMANIA [None]
  - PYREXIA [None]
  - RASH [None]
  - STEVENS-JOHNSON SYNDROME [None]
